FAERS Safety Report 6893590-0 (Version None)
Quarter: 2010Q3

REPORT INFORMATION
  Report Type: 
  Country: None (occurrence: None)
  Receive Date: 20100731
  Receipt Date: 20091026
  Transmission Date: 20110219
  Serious: Yes (Death, Other)
  Sender: FDA-Public Use
  Company Number: US-PFIZER INC-2008069188

PATIENT
  Sex: Male
  Weight: 75 kg

DRUGS (5)
  1. NEURONTIN [Suspect]
     Indication: PAIN
  2. GABAPENTIN [Suspect]
     Indication: BACK PAIN
  3. VICODIN [Concomitant]
  4. FOSAMAX [Concomitant]
  5. TIZANIDINE HCL [Concomitant]

REACTIONS (10)
  - COMPLETED SUICIDE [None]
  - DEPRESSION [None]
  - HEADACHE [None]
  - HEARING IMPAIRED [None]
  - HYPERTENSION [None]
  - HYPOAESTHESIA [None]
  - INTERVERTEBRAL DISC DEGENERATION [None]
  - INTERVERTEBRAL DISC PROTRUSION [None]
  - PAIN [None]
  - POLLAKIURIA [None]
